FAERS Safety Report 5286918-9 (Version None)
Quarter: 2007Q1

REPORT INFORMATION
  Report Type: 
  Country: None (occurrence: None)
  Receive Date: 20070329
  Receipt Date: 20070315
  Transmission Date: 20070707
  Serious: Yes (Other)
  Sender: FDA-Public Use
  Company Number: 230028K07GRC

PATIENT
  Sex: Female

DRUGS (1)
  1. REBIF [Suspect]
     Dates: start: 20050101

REACTIONS (4)
  - BENIGN NEOPLASM OF THYROID GLAND [None]
  - BILIARY NEOPLASM [None]
  - HAEMATOCRIT DECREASED [None]
  - HEADACHE [None]
